FAERS Safety Report 4852722-6 (Version None)
Quarter: 2005Q4

REPORT INFORMATION
  Report Type: 
  Country: None (occurrence: None)
  Receive Date: 20051213
  Receipt Date: 20051017
  Transmission Date: 20060501
  Serious: Yes (Hospitalization, Other)
  Sender: FDA-Public Use
  Company Number: PHFR2005GB03430

PATIENT
  Age: 49 Year
  Sex: Female

DRUGS (5)
  1. CLOZARIL [Suspect]
     Indication: SCHIZOPHRENIA
     Dosage: 350 MG/DAY
     Route: 048
     Dates: start: 20041019
  2. CLOZARIL [Suspect]
     Dosage: 40 X 100 MG OVERDOSE
     Route: 048
  3. CLOZARIL [Suspect]
     Dosage: 450MG/DAY
     Route: 048
  4. TRAZODONE HCL [Concomitant]
     Indication: ANXIETY
     Dosage: 450MG/DAY
     Route: 048
  5. ORLISTAT [Concomitant]
     Indication: WEIGHT CONTROL
     Dosage: 360MG/DAY
     Route: 048
     Dates: start: 20050829

REACTIONS (5)
  - ALANINE AMINOTRANSFERASE INCREASED [None]
  - BLOOD ALKALINE PHOSPHATASE INCREASED [None]
  - ELECTROCARDIOGRAM QT PROLONGED [None]
  - GAMMA-GLUTAMYLTRANSFERASE INCREASED [None]
  - OVERDOSE [None]
